FAERS Safety Report 9070988 (Version 1)
Quarter: 2013Q1

REPORT INFORMATION
  Report Type: Report from Study
  Country: US (occurrence: US)
  Receive Date: 20130129
  Receipt Date: 20130129
  Transmission Date: 20140127
  Serious: Yes (Death)
  Sender: FDA-Public Use
  Company Number: US-VIIV HEALTHCARE LIMITED-B0861090A

PATIENT
  Age: 43 Year
  Sex: Male

DRUGS (7)
  1. MARAVIROC [Suspect]
     Indication: HIV INFECTION
     Dosage: 300MG TWICE PER DAY
     Dates: start: 20110513
  2. RITONAVIR [Concomitant]
     Dosage: 200MG PER DAY
     Dates: start: 20110513
  3. TIPRANAVIR [Concomitant]
     Dosage: 500MG TWICE PER DAY
     Dates: start: 20110513
  4. TENOFOVIR [Concomitant]
     Dosage: 300MG TWICE PER DAY
     Dates: start: 20110513
  5. RALTEGRAVIR [Concomitant]
     Dosage: 400MG TWICE PER DAY
     Dates: start: 20100105
  6. LAMIVUDINE-HIV [Concomitant]
     Dosage: 150MG TWICE PER DAY
     Dates: start: 20110224
  7. STAVUDINE [Concomitant]
     Dosage: 50MG TWICE PER DAY
     Dates: start: 20110630

REACTIONS (1)
  - Death [Fatal]
